FAERS Safety Report 5653815-6 (Version None)
Quarter: 2008Q1

REPORT INFORMATION
  Report Type: 
  Country: None (occurrence: None)
  Receive Date: 20080206
  Receipt Date: 20070221
  Transmission Date: 20080703
  Serious: Yes (Hospitalization)
  Sender: FDA-Public Use
  Company Number: US200611005302

PATIENT
  Age: 83 Year
  Sex: Female
  Weight: 54.4 kg

DRUGS (3)
  1. EVISTA [Suspect]
     Indication: OSTEOPOROSIS
     Dosage: 60 MG, ORAL
     Route: 048
     Dates: end: 20061114
  2. LORAZEPAM [Concomitant]
  3. CALTRATE (CALCIUM, VITAMIN D NOS) [Concomitant]

REACTIONS (1)
  - PULMONARY EMBOLISM [None]
